FAERS Safety Report 5778537-2 (Version None)
Quarter: 2008Q2

REPORT INFORMATION
  Report Type: 
  Country: None (occurrence: None)
  Receive Date: 20080619
  Receipt Date: 20080613
  Transmission Date: 20081010
  Serious: Yes (Death, Hospitalization, Other)
  Sender: FDA-Public Use
  Company Number: JP-AVENTIS-200815570GDDC

PATIENT
  Age: 75 Year
  Sex: Female

DRUGS (6)
  1. RIFADIN [Suspect]
     Dates: start: 20070901
  2. RIFADIN [Suspect]
     Indication: CUTANEOUS TUBERCULOSIS
     Dates: start: 20070901
  3. ISCOTIN                            /00030201/ [Suspect]
     Dates: start: 20070901
  4. ISCOTIN                            /00030201/ [Suspect]
     Indication: CUTANEOUS TUBERCULOSIS
     Dates: start: 20070901
  5. ETHAMBUTOL HYDROCHLORIDE [Suspect]
     Dates: start: 20070901
  6. ETHAMBUTOL HYDROCHLORIDE [Suspect]
     Indication: CUTANEOUS TUBERCULOSIS
     Dates: start: 20070901

REACTIONS (3)
  - CEREBRAL HAEMORRHAGE [None]
  - PANCYTOPENIA [None]
  - RENAL IMPAIRMENT [None]
